FAERS Safety Report 8479591 (Version 3)
Quarter: 2013Q2

REPORT INFORMATION
  Report Type: Report from Study
  Country: CH (occurrence: CH)
  Receive Date: 20120328
  Receipt Date: 20130422
  Transmission Date: 20140414
  Serious: Yes (Hospitalization)
  Sender: FDA-Public Use
  Company Number: CH-UCBSA-053746

PATIENT
  Age: 71 Year
  Sex: Male
  Weight: 75 kg

DRUGS (29)
  1. NEUPRO [Suspect]
     Indication: PARKINSON^S DISEASE
     Dosage: FREQUENCY CODE :OTHER ONCES EVERY OTHER DAY
     Route: 062
     Dates: start: 20110607, end: 20120223
  2. NEUPRO [Suspect]
     Indication: PARKINSON^S DISEASE
     Dosage: FREQUENCY CODE :OTHER ONCES EVERY OTHER DAY
     Route: 062
     Dates: start: 20110606, end: 20120223
  3. NEUPRO [Suspect]
     Indication: PARKINSON^S DISEASE
     Route: 062
     Dates: start: 20100308, end: 20110606
  4. NEUPRO [Suspect]
     Indication: PARKINSON^S DISEASE
     Route: 062
     Dates: start: 20100223, end: 20100307
  5. NEUPRO [Suspect]
     Indication: PARKINSON^S DISEASE
     Route: 062
     Dates: start: 20090513, end: 20100222
  6. NEUPRO [Suspect]
     Indication: PARKINSON^S DISEASE
     Route: 062
     Dates: start: 20090505, end: 20090512
  7. NEUPRO [Suspect]
     Indication: PARKINSON^S DISEASE
     Route: 062
     Dates: start: 20080929, end: 20090504
  8. NEUPRO [Suspect]
     Indication: PARKINSON^S DISEASE
     Route: 062
     Dates: start: 20080920, end: 20080928
  9. NEUPRO [Suspect]
     Indication: PARKINSON^S DISEASE
     Route: 062
     Dates: start: 20080912, end: 20080919
  10. NEUPRO [Suspect]
     Indication: PARKINSON^S DISEASE
     Route: 062
     Dates: start: 20080904, end: 20080911
  11. MADOPAR [Concomitant]
     Indication: PARKINSON^S DISEASE
     Dates: start: 20091109, end: 20120116
  12. MADOPAR [Concomitant]
     Indication: PARKINSON^S DISEASE
     Dates: start: 20120117, end: 20120227
  13. MADOPAR [Concomitant]
     Indication: PARKINSON^S DISEASE
     Dates: start: 20120228, end: 20120309
  14. MADOPAR [Concomitant]
     Indication: PARKINSON^S DISEASE
     Dates: start: 20120310
  15. APROVEL [Concomitant]
     Indication: HYPERTENSION
  16. PANTOZOL [Concomitant]
     Indication: GASTROOESOPHAGEAL REFLUX DISEASE
     Dates: end: 20110614
  17. PANTOZOL [Concomitant]
     Indication: GASTROOESOPHAGEAL REFLUX DISEASE
     Dates: start: 20110615
  18. NEPHROTRANS [Concomitant]
     Indication: RENAL FAILURE
  19. CALCIMAGON D3 [Concomitant]
     Indication: PLASMA CELL MYELOMA
     Dates: start: 2008
  20. ACIDUM FOLICUM [Concomitant]
     Indication: PLASMA CELL MYELOMA
     Dates: start: 2008
  21. DIALVIT [Concomitant]
     Indication: RENAL FAILURE
     Dosage: UNKNOWN DOSE
     Dates: start: 20110617
  22. ZOLPIDEM [Concomitant]
     Indication: SLEEP DISORDER
     Dates: start: 20110617
  23. VI-DE 3 COLECALCIFEROL [Concomitant]
     Indication: RENAL FAILURE
     Dosage: 20 OTHER DROPS
     Dates: start: 20110617
  24. VITARUBIN [Concomitant]
     Indication: RENAL FAILURE
     Route: 051
  25. ARANESP [Concomitant]
     Indication: RENAL FAILURE
     Dosage: FREQUENCY CODE :EVERY OTHER WEEK
     Route: 058
     Dates: end: 20120302
  26. ARANESP [Concomitant]
     Indication: RENAL FAILURE
     Dates: start: 20120303
  27. DETRUSITOL [Concomitant]
     Indication: RENAL FAILURE
     Dates: start: 20110617
  28. TORASEMID [Concomitant]
     Indication: RENAL FAILURE
     Dates: end: 20120220
  29. ZEMPLAR [Concomitant]
     Indication: RENAL FAILURE

REACTIONS (1)
  - General physical health deterioration [Recovered/Resolved]
